FAERS Safety Report 25152460 (Version 1)
Quarter: 2025Q2

REPORT INFORMATION
  Report Type: Report from Study
  Country: US (occurrence: US)
  Receive Date: 20250402
  Receipt Date: 20250402
  Transmission Date: 20250717
  Serious: Yes (Other)
  Sender: ABBVIE
  Company Number: US-ABBVIE-6101665

PATIENT
  Age: 63 Year
  Sex: Female

DRUGS (1)
  1. HUMIRA [Suspect]
     Active Substance: ADALIMUMAB
     Indication: Rheumatoid arthritis
     Route: 058
     Dates: start: 20150201

REACTIONS (9)
  - Upper limb fracture [Unknown]
  - Fall [Not Recovered/Not Resolved]
  - Dizziness [Unknown]
  - Inflammation [Unknown]
  - Wrist fracture [Recovering/Resolving]
  - Post procedural oedema [Unknown]
  - Procedural pain [Recovering/Resolving]
  - Noninfective encephalitis [Unknown]
  - Tonsillar inflammation [Unknown]

NARRATIVE: CASE EVENT DATE: 20250122
